FAERS Safety Report 20920563 (Version 2)
Quarter: 2022Q2

REPORT INFORMATION
  Report Type: Spontaneous
  Country: CZ (occurrence: CZ)
  Receive Date: 20220606
  Receipt Date: 20220615
  Transmission Date: 20220721
  Serious: Yes (Hospitalization, Other)
  Sender: FDA-Public Use
  Company Number: CZ-JNJFOC-20220561018

PATIENT
  Age: 51 Year
  Sex: Female
  Weight: 99 kg

DRUGS (31)
  1. VELCADE [Suspect]
     Active Substance: BORTEZOMIB
     Indication: Primary amyloidosis
     Dosage: 1.3 MILLIGRAM/SQ. METER
     Route: 058
     Dates: start: 20220328
  2. VELCADE [Suspect]
     Active Substance: BORTEZOMIB
     Indication: Chemotherapy
     Dosage: 1 MILLIGRAM/SQ. METER
     Route: 058
     Dates: start: 20220427
  3. DEXAMETHASONE [Suspect]
     Active Substance: DEXAMETHASONE
     Indication: Primary amyloidosis
     Dosage: 20 MILLIGRAM
     Route: 065
     Dates: start: 20220328
  4. DEXAMETHASONE [Suspect]
     Active Substance: DEXAMETHASONE
     Dosage: 10 MILLIGRAM
     Route: 065
     Dates: start: 20220427
  5. DARATUMUMAB [Concomitant]
     Active Substance: DARATUMUMAB
     Indication: Chemotherapy
     Dosage: UNK
     Route: 065
     Dates: start: 20220328
  6. CYCLOPHOSPHAMIDE [Concomitant]
     Active Substance: CYCLOPHOSPHAMIDE
     Indication: Chemotherapy
     Dosage: UNK
     Route: 065
     Dates: start: 20220328
  7. Paralen [Concomitant]
     Indication: Premedication
     Dosage: UNK
     Route: 065
     Dates: start: 20220328, end: 20220328
  8. ZYRTEC [Concomitant]
     Active Substance: CETIRIZINE HYDROCHLORIDE
     Indication: Premedication
     Dosage: UNK
     Route: 065
     Dates: start: 20220328, end: 20220328
  9. VALACYCLOVIR HYDROCHLORIDE [Concomitant]
     Active Substance: VALACYCLOVIR HYDROCHLORIDE
     Indication: Premedication
     Dosage: UNK
     Route: 065
     Dates: start: 20220323
  10. NADROPARIN CALCIUM [Concomitant]
     Active Substance: NADROPARIN CALCIUM
     Indication: Premedication
     Dosage: UNK
     Route: 065
     Dates: start: 202203
  11. FURAZOLIDONE [Concomitant]
     Active Substance: FURAZOLIDONE
     Indication: Premedication
     Dosage: UNK
     Route: 065
     Dates: start: 2006
  12. METOCLOPRAMIDE HYDROCHLORIDE [Concomitant]
     Active Substance: METOCLOPRAMIDE HYDROCHLORIDE
     Dosage: UNK
     Route: 065
     Dates: start: 202203
  13. PANTOPRAZOLE SODIUM [Concomitant]
     Active Substance: PANTOPRAZOLE SODIUM
     Indication: Premedication
     Dosage: UNK
     Route: 065
     Dates: start: 202203
  14. METAMIZOLE [Concomitant]
     Active Substance: METAMIZOLE
     Dosage: UNK
     Route: 065
     Dates: start: 2002
  15. MAGNESIUM LACTATE [Concomitant]
     Active Substance: MAGNESIUM LACTATE
     Indication: Premedication
     Dosage: UNK
     Route: 065
     Dates: start: 2011
  16. ATROVENT [Concomitant]
     Active Substance: IPRATROPIUM BROMIDE
     Dosage: UNK
     Route: 065
     Dates: start: 2010
  17. SERETIDE [Concomitant]
     Active Substance: FLUTICASONE PROPIONATE\SALMETEROL XINAFOATE
     Dosage: UNK
     Route: 065
     Dates: start: 2010
  18. FUROSEMIDE [Concomitant]
     Active Substance: FUROSEMIDE
     Indication: Premedication
     Dosage: UNK
     Route: 065
     Dates: start: 20220328, end: 20220404
  19. ZOFRAN [Concomitant]
     Active Substance: ONDANSETRON HYDROCHLORIDE
     Dosage: UNK
     Route: 065
     Dates: start: 20220328, end: 20220328
  20. POTASSIUM CHLORIDE [Concomitant]
     Active Substance: POTASSIUM CHLORIDE
     Dosage: UNK
     Route: 065
     Dates: start: 20220328, end: 20220329
  21. ALLOPURINOL [Concomitant]
     Active Substance: ALLOPURINOL
     Indication: Premedication
     Dosage: UNK
     Route: 065
     Dates: start: 20220328
  22. HYDROCORTISONE [Concomitant]
     Active Substance: HYDROCORTISONE
     Indication: Premedication
     Dosage: UNK
     Route: 065
     Dates: start: 20220328, end: 20220328
  23. IMODIUM [Concomitant]
     Active Substance: LOPERAMIDE HYDROCHLORIDE
     Indication: Premedication
     Dosage: UNK
     Route: 065
     Dates: start: 20220328, end: 20220328
  24. DIBEN DRINK [Concomitant]
     Indication: Nutritional supplementation
     Dosage: UNK
     Route: 065
     Dates: start: 20220328, end: 20220329
  25. DIETARY SUPPLEMENT [Concomitant]
     Active Substance: DIETARY SUPPLEMENT
     Indication: Nutritional supplementation
     Dosage: UNK
     Route: 065
     Dates: start: 20220405
  26. BISEPTOL [Concomitant]
     Active Substance: SULFAMETHOXAZOLE\TRIMETHOPRIM
     Indication: Premedication
     Dosage: UNK
     Route: 065
     Dates: start: 20220329
  27. FRESUBIN PROTEIN ENERGY [Concomitant]
     Indication: Nutritional supplementation
     Dosage: UNK
     Route: 065
     Dates: start: 20220329, end: 20220405
  28. AZITHROX [Concomitant]
     Indication: Premedication
     Dosage: UNK
     Route: 065
     Dates: start: 20220330, end: 20220404
  29. LACTULOSE [Concomitant]
     Active Substance: LACTULOSE
     Dosage: UNK
     Route: 065
     Dates: start: 20220331, end: 20220405
  30. Neurol [Concomitant]
     Indication: Premedication
     Dosage: UNK
     Route: 065
     Dates: start: 20220401, end: 20220405
  31. URSODIOL [Concomitant]
     Active Substance: URSODIOL
     Indication: Premedication
     Dosage: UNK
     Route: 065
     Dates: start: 20220404

REACTIONS (3)
  - Cardiac failure [Recovered/Resolved with Sequelae]
  - Liver disorder [Unknown]
  - Off label use [Unknown]

NARRATIVE: CASE EVENT DATE: 20220328
